FAERS Safety Report 21320420 (Version 3)
Quarter: 2022Q4

REPORT INFORMATION
  Report Type: Spontaneous
  Country: US (occurrence: US)
  Receive Date: 20220911
  Receipt Date: 20221001
  Transmission Date: 20230113
  Serious: No
  Sender: FDA-Public Use
  Company Number: US-JNJFOC-20220907362

PATIENT
  Age: 3 Year
  Sex: Male

DRUGS (5)
  1. UPTRAVI [Suspect]
     Active Substance: SELEXIPAG
     Indication: Pulmonary hypertension
     Route: 048
     Dates: start: 20220827
  2. UPTRAVI [Suspect]
     Active Substance: SELEXIPAG
     Dosage: DISSOLVE 100 UG IN 5ML OF APPLE JUICE AND TAKE BY MOUTH TWICE DAILY
     Route: 048
  3. AMBRISENTAN [Suspect]
     Active Substance: AMBRISENTAN
     Indication: Pulmonary hypertension
     Route: 048
     Dates: start: 20210904
  4. REMODULIN [Suspect]
     Active Substance: TREPROSTINIL
     Indication: Pulmonary hypertension
     Route: 048
     Dates: start: 20201107
  5. TADALAFIL [Suspect]
     Active Substance: TADALAFIL
     Indication: Pulmonary hypertension
     Route: 065
     Dates: start: 202208

REACTIONS (3)
  - Weight fluctuation [Unknown]
  - Off label use [Unknown]
  - Nausea [Unknown]
